FAERS Safety Report 4506185-0 (Version None)
Quarter: 2004Q4

REPORT INFORMATION
  Report Type: 
  Country: None (occurrence: None)
  Receive Date: 20041025
  Receipt Date: 20040507
  Transmission Date: 20050328
  Serious: Yes (Life-Threatening, Hospitalization, Other)
  Sender: FDA-Public Use
  Company Number: US-JNJFOC-20031003293

PATIENT
  Age: 63 Year
  Sex: Female
  Weight: 56.6996 kg

DRUGS (13)
  1. REMICADE [Suspect]
     Indication: RHEUMATOID ARTHRITIS
     Dosage: 200 MG INTRAVENOUS
     Dates: start: 20000901, end: 20000901
  2. METHOTREXATE [Suspect]
     Indication: RHEUMATOID ARTHRITIS
     Dosage: 20 MG 1 IN 1 WEEK
     Dates: start: 19980101, end: 20030101
  3. PROZAC [Concomitant]
  4. FOLIC ACID [Concomitant]
  5. PREM-PRO (PREMARIN PLUS) [Concomitant]
  6. FIOROCET (AXOTAL (OLD FORM) [Concomitant]
  7. FLONASE [Concomitant]
  8. AMBIEN [Concomitant]
  9. ENBREL [Concomitant]
  10. MULTIVITAMIN [Concomitant]
  11. VITAMIN C [Concomitant]
  12. SELENIUM (SELENIUM) [Concomitant]
  13. ENTEX CAP [Concomitant]

REACTIONS (2)
  - DIFFUSE LARGE B-CELL LYMPHOMA [None]
  - HYPOKALAEMIA [None]
